FAERS Safety Report 10756109 (Version 1)
Quarter: 2015Q1

REPORT INFORMATION
  Report Type: Spontaneous
  Country: US (occurrence: None)
  Receive Date: 20150123
  Receipt Date: 20150123
  Transmission Date: 20150721
  Serious: No
  Sender: FDA-Public Use
  Company Number: 2014TUS006713

PATIENT
  Age: 84 Year
  Sex: Male
  Weight: 52.6 kg

DRUGS (3)
  1. ENTYVIO [Suspect]
     Active Substance: VEDOLIZUMAB
     Indication: COLITIS ULCERATIVE
     Dosage: 300 MG, WEEK ZERO
     Route: 042
     Dates: start: 20140724
  2. TEMAZEPAM (TEMAZEPAM) [Concomitant]
     Active Substance: TEMAZEPAM
  3. SULFASALAZINE (SULFASALAZINE) [Concomitant]
     Active Substance: SULFASALAZINE

REACTIONS (1)
  - Frequent bowel movements [None]
